FAERS Safety Report 8891390 (Version 1)
Quarter: 2012Q4

REPORT INFORMATION
  Report Type: Spontaneous
  Country: US (occurrence: None)
  Receive Date: 20121105
  Receipt Date: 20121105
  Transmission Date: 20130627
  Serious: Yes (Other)
  Sender: FDA-Public Use
  Company Number: None

PATIENT
  Age: 37 Year
  Sex: Female

DRUGS (3)
  1. PEGASYS [Suspect]
     Indication: HEPATITIS C
     Route: 058
     Dates: start: 20120913, end: 20121024
  2. RIBAVIRIN [Suspect]
     Route: 048
     Dates: start: 20120913, end: 20121024
  3. INCIVEK [Concomitant]

REACTIONS (6)
  - Influenza like illness [None]
  - Nausea [None]
  - Vomiting [None]
  - Food poisoning [None]
  - White blood cell count decreased [None]
  - Neutropenia [None]
